FAERS Safety Report 6234471-5 (Version None)
Quarter: 2009Q2

REPORT INFORMATION
  Report Type: 
  Country: None (occurrence: None)
  Receive Date: 20090615
  Receipt Date: 20090505
  Transmission Date: 20091009
  Serious: No
  Sender: FDA-Public Use
  Company Number: DSA_33605_2009

PATIENT
  Age: 17 Year
  Sex: Male

DRUGS (3)
  1. XENAZINE [Suspect]
     Indication: TOURETTE'S DISORDER
     Dosage: (12.5 MG BID)
     Dates: start: 20090407, end: 20090420
  2. RISPERDAL [Concomitant]
  3. PROZAC /00724401/ [Concomitant]

REACTIONS (3)
  - AGITATION [None]
  - DRUG INEFFECTIVE FOR UNAPPROVED INDICATION [None]
  - RESTLESSNESS [None]
